FAERS Safety Report 4450515-5 (Version None)
Quarter: 2004Q3

REPORT INFORMATION
  Report Type: 
  Country: None (occurrence: None)
  Receive Date: 20040914
  Receipt Date: 20040831
  Transmission Date: 20050211
  Serious: Yes (Hospitalization)
  Sender: FDA-Public Use
  Company Number: 2004061447

PATIENT
  Sex: Female
  Weight: 58.0604 kg

DRUGS (4)
  1. NEURONTIN [Suspect]
     Indication: NEURALGIA
     Dosage: ORAL
     Route: 048
     Dates: start: 20020601
  2. BACLOFEN [Concomitant]
  3. IBUPROFEN [Concomitant]
  4. GLATIRAMER ACETATE (GLATIRAMER ACETATE) [Concomitant]

REACTIONS (8)
  - INSOMNIA [None]
  - JAUNDICE [None]
  - LOSS OF CONTROL OF LEGS [None]
  - MULTIPLE SCLEROSIS [None]
  - NAUSEA [None]
  - PAIN EXACERBATED [None]
  - PAIN IN EXTREMITY [None]
  - SKIN DISCOLOURATION [None]
